FAERS Safety Report 12419301 (Version 1)
Quarter: 2016Q2

REPORT INFORMATION
  Report Type: Spontaneous
  Country: US (occurrence: None)
  Receive Date: 20160527
  Receipt Date: 20160527
  Transmission Date: 20160815
  Serious: No
  Sender: FDA-Public Use
  Company Number: None

PATIENT
  Age: 35 Year
  Sex: Female
  Weight: 86.18 kg

DRUGS (1)
  1. XIFAXIAN [Suspect]
     Active Substance: RIFAXIMIN
     Indication: IRRITABLE BOWEL SYNDROME
     Route: 048

REACTIONS (3)
  - Diarrhoea [None]
  - Irritable bowel syndrome [None]
  - Abdominal pain upper [None]

NARRATIVE: CASE EVENT DATE: 20160503
